FAERS Safety Report 4392081-9 (Version None)
Quarter: 2004Q3

REPORT INFORMATION
  Report Type: 
  Country: None (occurrence: None)
  Receive Date: 20040702
  Receipt Date: 20040618
  Transmission Date: 20050211
  Serious: No
  Sender: FDA-Public Use
  Company Number: 200223

PATIENT
  Age: 56 Year
  Sex: Female

DRUGS (1)
  1. AVONEX [Suspect]
     Indication: MULTIPLE SCLEROSIS
     Dosage: 30 MCG QW IM
     Route: 030

REACTIONS (2)
  - SEPSIS [None]
  - URINARY TRACT INFECTION [None]
